FAERS Safety Report 15363033 (Version 18)
Quarter: 2020Q2

REPORT INFORMATION
  Report Type: Report from Study
  Country: MY (occurrence: MY)
  Receive Date: 20180907
  Receipt Date: 20200424
  Transmission Date: 20200713
  Serious: Yes (Hospitalization, Other)
  Sender: FDA-Public Use
  Company Number: PHHY2018MY048345

PATIENT
  Age: 63 Year
  Sex: Male

DRUGS (16)
  1. LOMOTIL [Concomitant]
     Active Substance: ATROPINE SULFATE\DIPHENOXYLATE HYDROCHLORIDE
     Indication: PROPHYLAXIS
     Dosage: 2 OT, UNK
     Route: 048
     Dates: start: 20180215, end: 20180222
  2. CEFUROXIME. [Concomitant]
     Active Substance: CEFUROXIME
     Dosage: 750 OT, UNK
     Route: 042
     Dates: start: 20190201, end: 20190204
  3. FRUSEMIDE [Concomitant]
     Active Substance: FUROSEMIDE
     Dosage: 40 OT, UNK
     Route: 042
     Dates: start: 20190225
  4. METFORMIN [Concomitant]
     Active Substance: METFORMIN HYDROCHLORIDE
     Indication: DIABETES MELLITUS
     Dosage: 1 OT, UNK
     Route: 048
     Dates: start: 2012
  5. HYDROCORTISONE. [Concomitant]
     Active Substance: HYDROCORTISONE
     Indication: PRURITUS
     Dosage: 1 OT, UNK
     Route: 061
     Dates: start: 20190117, end: 20190202
  6. FRUSEMIDE [Concomitant]
     Active Substance: FUROSEMIDE
     Dosage: 40 OT, UNK
     Route: 042
     Dates: start: 20190226, end: 20190228
  7. SPIRONOLACTONE. [Concomitant]
     Active Substance: SPIRONOLACTONE
     Indication: FLUID OVERLOAD
     Dosage: 100 OT, UNK
     Route: 048
     Dates: start: 20190219
  8. VOTRIENT [Suspect]
     Active Substance: PAZOPANIB HYDROCHLORIDE
     Dosage: 600 MG, UNK
     Route: 048
     Dates: start: 20181122
  9. METOCLOPRAMIDE. [Concomitant]
     Active Substance: METOCLOPRAMIDE
     Indication: PROPHYLAXIS
     Dosage: 10 OT, UNK
     Route: 048
     Dates: start: 20180215, end: 20180222
  10. TRAMADOL. [Concomitant]
     Active Substance: TRAMADOL
     Indication: PRODUCT USED FOR UNKNOWN INDICATION
     Dosage: 50 OT, UNK
     Route: 048
     Dates: start: 20180415, end: 20180515
  11. URAL [Concomitant]
     Indication: HYPERKALAEMIA
     Dosage: 4 OT
     Route: 048
     Dates: start: 20200130, end: 20200209
  12. DAONIL [Concomitant]
     Active Substance: GLYBURIDE
     Indication: DIABETES MELLITUS
     Dosage: 5 OT, UNK
     Route: 048
     Dates: start: 2012
  13. CEFUROXIME. [Concomitant]
     Active Substance: CEFUROXIME
     Indication: PRODUCT USED FOR UNKNOWN INDICATION
     Dosage: 750 OT, UNK
     Route: 042
     Dates: start: 20190131
  14. VOTRIENT [Suspect]
     Active Substance: PAZOPANIB HYDROCHLORIDE
     Indication: RENAL CELL CARCINOMA
     Dosage: 400 MG, 2 WEEK
     Route: 048
     Dates: start: 20180222, end: 20181121
  15. FRUSEMIDE [Concomitant]
     Active Substance: FUROSEMIDE
     Indication: FLUID OVERLOAD
     Dosage: 40 OT, UNK
     Route: 042
     Dates: start: 20190130, end: 20190209
  16. AMLODIPINE [Concomitant]
     Active Substance: AMLODIPINE BESYLATE
     Indication: HYPERTENSION
     Dosage: 10 OT, UNK
     Route: 048
     Dates: start: 2014

REACTIONS (20)
  - Hyperkalaemia [Recovered/Resolved]
  - Hyperkalaemia [Recovered/Resolved]
  - Anaemia [Not Recovered/Not Resolved]
  - Hyperkalaemia [Recovered/Resolved]
  - Hyponatraemia [Not Recovered/Not Resolved]
  - Chest pain [Recovered/Resolved]
  - Hyperkalaemia [Recovered/Resolved]
  - Dry skin [Recovered/Resolved]
  - Hypoalbuminaemia [Not Recovered/Not Resolved]
  - Hyperkalaemia [Recovered/Resolved]
  - Pain [Recovered/Resolved]
  - Hyperkalaemia [Recovered/Resolved]
  - Testicular pain [Recovering/Resolving]
  - Neuropathy peripheral [Recovered/Resolved]
  - Paraesthesia oral [Recovered/Resolved]
  - Proteinuria [Recovering/Resolving]
  - Constipation [Not Recovered/Not Resolved]
  - Hypoalbuminaemia [Recovered/Resolved]
  - Hypoalbuminaemia [Not Recovered/Not Resolved]
  - Hypoglycaemia [Recovered/Resolved]

NARRATIVE: CASE EVENT DATE: 20180308
